FAERS Safety Report 15682034 (Version 1)
Quarter: 2018Q4

REPORT INFORMATION
  Report Type: Spontaneous
  Country: US (occurrence: US)
  Receive Date: 20181203
  Receipt Date: 20181203
  Transmission Date: 20190205
  Serious: Yes (Hospitalization)
  Sender: FDA-Public Use
  Company Number: None

PATIENT
  Sex: Female

DRUGS (5)
  1. ENBREL [Suspect]
     Active Substance: ETANERCEPT
     Indication: RHEUMATOID ARTHRITIS
     Dosage: ?          OTHER FREQUENCY:QW;?
     Route: 058
     Dates: start: 20170118
  2. CALCIUM+D, NEXIUM, ETOODOLAC [Concomitant]
  3. BRIO ELLIPTA INH, LOVASTATIN [Concomitant]
  4. PLAQUENIL [Concomitant]
     Active Substance: HYDROXYCHLOROQUINE SULFATE
  5. ETODOLAC, ACEBUTOLOL, METHOTREXATE [Concomitant]

REACTIONS (1)
  - Back pain [None]
